FAERS Safety Report 8967866 (Version 1)
Quarter: 2012Q4

REPORT INFORMATION
  Report Type: Spontaneous
  Country: US (occurrence: None)
  Receive Date: 20121213
  Receipt Date: 20121213
  Transmission Date: 20130627
  Serious: Yes (Life-Threatening)
  Sender: FDA-Public Use
  Company Number: None

PATIENT
  Age: 65 Year
  Sex: Male
  Weight: 88 kg

DRUGS (6)
  1. DABIGATRAN [Suspect]
     Dates: start: 20121119, end: 20121129
  2. ALLOPURINIOL [Concomitant]
  3. LASIX [Concomitant]
  4. ASA [Concomitant]
  5. LOPRESSOR [Concomitant]
  6. HCTZ [Concomitant]

REACTIONS (4)
  - Cardiogenic shock [None]
  - Pericardial effusion [None]
  - Cardiac tamponade [None]
  - Lower gastrointestinal haemorrhage [None]
